FAERS Safety Report 5063711-3 (Version None)
Quarter: 2006Q3

REPORT INFORMATION
  Report Type: 
  Country: None (occurrence: None)
  Receive Date: 20060727
  Receipt Date: 20060717
  Transmission Date: 20061208
  Serious: Yes (Hospitalization)
  Sender: FDA-Public Use
  Company Number: FR-BRISTOL-MYERS SQUIBB COMPANY-13445622

PATIENT
  Age: 53 Year
  Sex: Male

DRUGS (4)
  1. COUMADIN [Suspect]
     Indication: PHLEBITIS
     Route: 048
  2. DIALGIREX [Suspect]
     Route: 048
     Dates: start: 20060617, end: 20060619
  3. LAMALINE [Suspect]
     Route: 048
     Dates: start: 20060617, end: 20060619
  4. TETRAZEPAM [Suspect]
     Route: 048
     Dates: start: 20060617, end: 20060619

REACTIONS (3)
  - DRUG INEFFECTIVE [None]
  - PHLEBITIS [None]
  - PROTHROMBIN TIME PROLONGED [None]
